FAERS Safety Report 25735743 (Version 1)
Quarter: 2025Q3

REPORT INFORMATION
  Report Type: Spontaneous
  Country: US (occurrence: US)
  Receive Date: 20250828
  Receipt Date: 20250828
  Transmission Date: 20251020
  Serious: No
  Sender: MYLAN
  Company Number: US-MYLANLABS-2025M1069766

PATIENT
  Age: 78 Year
  Sex: Female

DRUGS (4)
  1. WIXELA INHUB [Suspect]
     Active Substance: FLUTICASONE PROPIONATE\SALMETEROL XINAFOATE
     Indication: Dyspnoea
     Dosage: 100/50 MICROGRAM, BID (TWICE DAILY)
     Dates: start: 20250602
  2. WIXELA INHUB [Suspect]
     Active Substance: FLUTICASONE PROPIONATE\SALMETEROL XINAFOATE
     Dosage: 100/50 MICROGRAM, BID (TWICE DAILY)
     Route: 065
     Dates: start: 20250602
  3. WIXELA INHUB [Suspect]
     Active Substance: FLUTICASONE PROPIONATE\SALMETEROL XINAFOATE
     Dosage: 100/50 MICROGRAM, BID (TWICE DAILY)
     Route: 065
     Dates: start: 20250602
  4. WIXELA INHUB [Suspect]
     Active Substance: FLUTICASONE PROPIONATE\SALMETEROL XINAFOATE
     Dosage: 100/50 MICROGRAM, BID (TWICE DAILY)
     Dates: start: 20250602

REACTIONS (3)
  - Off label use [Unknown]
  - Device delivery system issue [Unknown]
  - Device malfunction [Unknown]

NARRATIVE: CASE EVENT DATE: 20250602
